FAERS Safety Report 9897187 (Version 2)
Quarter: 2014Q1

REPORT INFORMATION
  Report Type: Report from Study
  Country: AU (occurrence: AU)
  Receive Date: 20140214
  Receipt Date: 20140218
  Transmission Date: 20141002
  Serious: Yes (Death)
  Sender: FDA-Public Use
  Company Number: AU-ROCHE-1349212

PATIENT
  Age: 59 Year
  Sex: Female
  Weight: 69 kg

DRUGS (3)
  1. OMALIZUMAB [Suspect]
     Indication: ASTHMA
     Route: 058
     Dates: start: 20110831
  2. OMALIZUMAB [Suspect]
     Route: 058
     Dates: start: 20130923
  3. OMALIZUMAB [Suspect]
     Route: 058
     Dates: start: 20140120

REACTIONS (1)
  - Death [Fatal]
